FAERS Safety Report 4639398-8 (Version None)
Quarter: 2005Q2

REPORT INFORMATION
  Report Type: 
  Country: None (occurrence: None)
  Receive Date: 20050419
  Receipt Date: 20040322
  Transmission Date: 20051028
  Serious: Yes (Congenital Anomaly)
  Sender: FDA-Public Use
  Company Number: US-MERCK-0403USA02052B1

PATIENT
  Age: 0 Day
  Sex: Male
  Weight: 4 kg

DRUGS (8)
  1. SINGULAIR [Suspect]
     Indication: ASTHMA
  2. SINGULAIR [Suspect]
     Indication: HYPERSENSITIVITY
  3. FLONASE [Concomitant]
     Indication: ASTHMA
  4. FLONASE [Concomitant]
     Indication: HYPERSENSITIVITY
  5. SEREVENT [Concomitant]
     Indication: ASTHMA
  6. SEREVENT [Concomitant]
     Indication: HYPERSENSITIVITY
  7. VITAFOL CAPLETS [Concomitant]
     Dates: start: 20030101
  8. ALBUTEROL [Concomitant]

REACTIONS (14)
  - BREECH PRESENTATION [None]
  - CEPHALO-PELVIC DISPROPORTION [None]
  - CONGENITAL ANOMALY [None]
  - ECZEMA [None]
  - HERPES SIMPLEX [None]
  - JAUNDICE [None]
  - JAUNDICE NEONATAL [None]
  - NAUSEA [None]
  - PLAGIOCEPHALY [None]
  - PREGNANCY [None]
  - PREMATURE LABOUR [None]
  - TORTICOLLIS [None]
  - UTERINE DISORDER [None]
  - VAGINAL PAIN [None]
